FAERS Safety Report 8332647-4 (Version None)
Quarter: 2012Q2

REPORT INFORMATION
  Report Type: 
  Country: None (occurrence: None)
  Receive Date: 20120503
  Receipt Date: 20120418
  Transmission Date: 20120825
  Serious: Yes (Other)
  Sender: FDA-Public Use
  Company Number: CN-JNJFOC-20120501910

PATIENT
  Sex: Female
  Weight: 70 kg

DRUGS (3)
  1. LOPERAMIDE [Suspect]
     Indication: RECTAL CANCER
     Route: 048
     Dates: start: 20110522, end: 20110528
  2. UNKNOWN MEDICATION [Suspect]
     Indication: FLUID REPLACEMENT
     Dates: start: 20110521
  3. ANISODAMINE [Suspect]
     Indication: DIARRHOEA
     Route: 065
     Dates: start: 20110523

REACTIONS (1)
  - INTESTINAL OBSTRUCTION [None]
